FAERS Safety Report 4531927-8 (Version None)
Quarter: 2004Q4

REPORT INFORMATION
  Report Type: 
  Country: None (occurrence: None)
  Receive Date: 20041220
  Receipt Date: 20041206
  Transmission Date: 20050328
  Serious: Yes (Hospitalization, Other)
  Sender: FDA-Public Use
  Company Number: US-GLAXOSMITHKLINE-A0536159A

PATIENT
  Age: 65 Year
  Sex: Female
  Weight: 109.1 kg

DRUGS (4)
  1. CITRUCEL REGULAR SUSPENSION [Suspect]
     Indication: CONSTIPATION
     Route: 048
     Dates: start: 20031201
  2. METHADONE HCL [Concomitant]
     Route: 048
  3. TYLENOL W/ CODEINE NO. 3 [Concomitant]
     Route: 048
  4. UNSPECIFIED MEDICATION [Concomitant]
     Route: 048

REACTIONS (2)
  - ARTHRITIS [None]
  - OEDEMA PERIPHERAL [None]
